FAERS Safety Report 9915501 (Version 1)
Quarter: 2014Q1

REPORT INFORMATION
  Report Type: Spontaneous
  Country: US (occurrence: US)
  Receive Date: 20140221
  Receipt Date: 20140221
  Transmission Date: 20141002
  Serious: No
  Sender: FDA-Public Use
  Company Number: US-009507513-1402USA007507

PATIENT
  Age: 19 Year
  Sex: Female
  Weight: 91.16 kg

DRUGS (1)
  1. NEXPLANON [Suspect]
     Indication: CONTRACEPTION
     Dosage: ONE ROD ONCE
     Route: 059
     Dates: start: 20131017, end: 20140212

REACTIONS (4)
  - Nausea [Unknown]
  - Unintended pregnancy [Unknown]
  - Adverse event [Unknown]
  - Inappropriate schedule of drug administration [Unknown]
